FAERS Safety Report 7988168-1 (Version None)
Quarter: 2011Q4

REPORT INFORMATION
  Report Type: 
  Country: None (occurrence: None)
  Receive Date: 20111216
  Receipt Date: 20101228
  Transmission Date: 20120403
  Serious: No
  Sender: FDA-Public Use
  Company Number: US-BRISTOL-MYERS SQUIBB COMPANY-15432750

PATIENT
  Age: 77 Year
  Sex: Female
  Weight: 66 kg

DRUGS (7)
  1. ALBUTEROL [Concomitant]
  2. AMLODIPINE BESYLATE [Concomitant]
  3. CALCIUM [Concomitant]
  4. MULTI-VITAMIN [Concomitant]
  5. ALENDRONATE SODIUM [Concomitant]
  6. ABILIFY [Suspect]
  7. SIMVASTATIN [Concomitant]

REACTIONS (6)
  - WHEEZING [None]
  - TREATMENT NONCOMPLIANCE [None]
  - BLOOD CHOLESTEROL INCREASED [None]
  - COUGH [None]
  - HYPERTENSION [None]
  - DYSPNOEA [None]
